FAERS Safety Report 8935588 (Version 1)
Quarter: 2012Q4

REPORT INFORMATION
  Report Type: 
  Country: US (occurrence: US)
  Receive Date: 20121130
  Receipt Date: 20121130
  Transmission Date: 20130627
  Serious: Yes (Other)
  Sender: FDA-Public Use
  Company Number: US-PFIZER INC-2012299306

PATIENT
  Sex: Female
  Weight: 52.15 kg

DRUGS (4)
  1. EFFEXOR XR [Suspect]
     Indication: SOCIAL ANXIETY DISORDER
     Dosage: 150 mg, daily
     Route: 048
  2. EFFEXOR XR [Suspect]
     Indication: DEPRESSION
  3. ZOLOFT [Suspect]
     Indication: SOCIAL ANXIETY DISORDER
     Dosage: UNK, daily
  4. ZOLOFT [Suspect]
     Indication: DEPRESSION

REACTIONS (9)
  - Abortion spontaneous [Unknown]
  - Withdrawal syndrome [Unknown]
  - Feeling abnormal [Unknown]
  - Drug ineffective [Unknown]
  - Libido decreased [Recovered/Resolved]
  - Fatigue [Recovered/Resolved]
  - Skin exfoliation [Recovered/Resolved]
  - Paraesthesia [Unknown]
  - Mood altered [Unknown]
